FAERS Safety Report 9871753 (Version 2)
Quarter: 2014Q1

REPORT INFORMATION
  Report Type: Spontaneous
  Country: US (occurrence: US)
  Receive Date: 20140205
  Receipt Date: 20140205
  Transmission Date: 20141002
  Serious: No
  Sender: FDA-Public Use
  Company Number: US-AMGEN-USASP2013025708

PATIENT
  Age: 52 Year
  Sex: Female

DRUGS (5)
  1. NEULASTA [Suspect]
     Indication: INFECTION PROPHYLAXIS
     Dosage: UNK UNK, AFTER EACH CHEMOTHERAPY CYCLE
     Route: 065
     Dates: start: 20121010, end: 20130122
  2. HERCEPTIN [Concomitant]
     Dosage: UNK UNK, QWK
  3. ADVIL                              /00044201/ [Concomitant]
     Dosage: UNK
  4. VITAMINS                           /90003601/ [Concomitant]
     Dosage: UNK
  5. CHEMOTHERAPEUTICS [Concomitant]
     Indication: BREAST CANCER
     Dosage: UNK

REACTIONS (1)
  - White blood cell count decreased [Unknown]
